FAERS Safety Report 4367683-6 (Version None)
Quarter: 2004Q2

REPORT INFORMATION
  Report Type: 
  Country: None (occurrence: None)
  Receive Date: 20040601
  Receipt Date: 20040525
  Transmission Date: 20050107
  Serious: Yes (Hospitalization)
  Sender: FDA-Public Use
  Company Number: FR-GLAXOSMITHKLINE-B0333742A

PATIENT
  Age: 2 Year
  Sex: Male
  Weight: 14 kg

DRUGS (3)
  1. AUGMENTIN [Suspect]
     Route: 048
     Dates: start: 20040306, end: 20040309
  2. ADVIL [Suspect]
     Route: 048
     Dates: start: 20040304, end: 20040309
  3. ORELOX [Suspect]
     Route: 048
     Dates: start: 20040304, end: 20040306

REACTIONS (6)
  - ABSCESS [None]
  - C-REACTIVE PROTEIN INCREASED [None]
  - LYMPHADENITIS [None]
  - LYMPHADENOPATHY [None]
  - PALLOR [None]
  - RED BLOOD CELL SEDIMENTATION RATE INCREASED [None]
